FAERS Safety Report 5787661-X (Version None)
Quarter: 2008Q2

REPORT INFORMATION
  Report Type: 
  Country: None (occurrence: None)
  Receive Date: 20080623
  Receipt Date: 20080623
  Transmission Date: 20081010
  Serious: No
  Sender: FDA-Public Use
  Company Number: None

PATIENT

DRUGS (1)
  1. ALBUMIN (HUMAN) [Suspect]
     Dosage: SEVERAL WEEKS

REACTIONS (1)
  - HYPOTENSION [None]
